FAERS Safety Report 17216249 (Version 5)
Quarter: 2021Q3

REPORT INFORMATION
  Report Type: Spontaneous
  Country: US (occurrence: US)
  Receive Date: 20191230
  Receipt Date: 20210729
  Transmission Date: 20211014
  Serious: Yes (Other)
  Sender: FDA-Public Use
  Company Number: US-PFIZER INC-2019225309

PATIENT
  Age: 79 Year
  Sex: Female

DRUGS (2)
  1. LYRICA [Suspect]
     Active Substance: PREGABALIN
     Indication: NEURALGIA
     Dosage: 50 MG, 2X/DAY
     Route: 048
  2. LYRICA [Suspect]
     Active Substance: PREGABALIN
     Dosage: 50 MG, 1X/DAY (TAKING ONE A DAY)

REACTIONS (8)
  - Musculoskeletal disorder [Unknown]
  - Pain [Unknown]
  - Insomnia [Unknown]
  - Intentional product misuse [Unknown]
  - Balance disorder [Unknown]
  - Mobility decreased [Unknown]
  - Diabetes mellitus [Unknown]
  - Arthropathy [Unknown]
